FAERS Safety Report 6155217-5 (Version None)
Quarter: 2009Q2

REPORT INFORMATION
  Report Type: 
  Country: None (occurrence: None)
  Receive Date: 20090415
  Receipt Date: 20090406
  Transmission Date: 20091009
  Serious: Yes (Life-Threatening, Hospitalization)
  Sender: FDA-Public Use
  Company Number: ES-AVENTIS-200911873EU

PATIENT
  Age: 88 Year
  Sex: Female

DRUGS (6)
  1. SEGURIL                            /00032601/ [Suspect]
     Route: 048
     Dates: start: 20080701, end: 20090119
  2. KARVEZIDE [Suspect]
     Dosage: DOSE: 1 DF
     Route: 048
     Dates: start: 20080701, end: 20090119
  3. DOXAZOSINA [Concomitant]
     Route: 048
     Dates: start: 20080701, end: 20090119
  4. BELMAZOL [Concomitant]
     Indication: GASTRITIS PROPHYLAXIS
     Route: 048
     Dates: start: 20080701, end: 20090119
  5. CLOPIDOGREL [Concomitant]
     Indication: CEREBROVASCULAR ACCIDENT
     Route: 048
     Dates: start: 20080701, end: 20090119
  6. LEXATIN [Concomitant]
     Indication: ANXIETY
     Route: 048
     Dates: start: 20080701, end: 20090119

REACTIONS (2)
  - ENCEPHALOPATHY [None]
  - HYPONATRAEMIA [None]
